FAERS Safety Report 11908448 (Version 1)
Quarter: 2016Q1

REPORT INFORMATION
  Report Type: Spontaneous
  Country: US (occurrence: US)
  Receive Date: 20160111
  Receipt Date: 20160111
  Transmission Date: 20160526
  Serious: No
  Sender: FDA-Public Use
  Company Number: US-PFIZER INC-2016004912

PATIENT
  Age: 31 Year
  Sex: Female
  Weight: 93 kg

DRUGS (1)
  1. JUNIOR STRENGTH ADVIL [Suspect]
     Active Substance: IBUPROFEN
     Dosage: ONE TABLET, 100MG, ONCE
     Dates: start: 20151228

REACTIONS (3)
  - Oral discomfort [Recovered/Resolved]
  - Product quality issue [Recovered/Resolved]
  - Throat irritation [Recovered/Resolved]

NARRATIVE: CASE EVENT DATE: 20151228
